FAERS Safety Report 12087963 (Version 2)
Quarter: 2016Q4

REPORT INFORMATION
  Report Type: Spontaneous
  Country: US (occurrence: US)
  Receive Date: 20160217
  Receipt Date: 20161122
  Transmission Date: 20170206
  Serious: No
  Sender: FDA-Public Use
  Company Number: US-ALLERGAN-1526649US

PATIENT
  Age: 55 Year
  Sex: Female
  Weight: 46.26 kg

DRUGS (6)
  1. VITAMIN C [Concomitant]
     Active Substance: ASCORBIC ACID
     Dosage: UNK
  2. COQ10 [Concomitant]
     Active Substance: UBIDECARENONE
     Dosage: UNK
  3. VITAMIN B12 [Concomitant]
     Active Substance: CYANOCOBALAMIN
     Indication: PRODUCT USED FOR UNKNOWN INDICATION
     Dosage: UNK
  4. KYBELLA [Suspect]
     Active Substance: DEOXYCHOLIC ACID
     Indication: FAT TISSUE INCREASED
     Dosage: 4.2 ML, SINGLE
     Route: 058
     Dates: start: 20150619, end: 20150619
  5. FISH OIL [Concomitant]
     Active Substance: FISH OIL
     Indication: PRODUCT USED FOR UNKNOWN INDICATION
     Dosage: UNK
  6. ZINC [Concomitant]
     Active Substance: ZINC\ZINC CHLORIDE
     Dosage: UNK

REACTIONS (4)
  - Cutis laxa [Recovering/Resolving]
  - Soft tissue atrophy [Not Recovered/Not Resolved]
  - Injection site swelling [Recovered/Resolved]
  - Soft tissue disorder [Not Recovered/Not Resolved]

NARRATIVE: CASE EVENT DATE: 20151020
